FAERS Safety Report 5771498-1 (Version None)
Quarter: 2008Q2

REPORT INFORMATION
  Report Type: 
  Country: None (occurrence: None)
  Receive Date: 20080612
  Receipt Date: 20080612
  Transmission Date: 20081010
  Serious: Yes (Life-Threatening)
  Sender: FDA-Public Use
  Company Number: None

PATIENT
  Age: 60 Year
  Sex: Male
  Weight: 55 kg

DRUGS (1)
  1. DAPTOMYCIN-CUBICIN- 500MG [Suspect]
     Indication: DEVICE RELATED INFECTION
     Dosage: 325MG Q24H IV
     Route: 042
     Dates: start: 20080505, end: 20080528

REACTIONS (7)
  - ACUTE RESPIRATORY DISTRESS SYNDROME [None]
  - AGITATION [None]
  - DYSPNOEA [None]
  - EOSINOPHILIA [None]
  - EOSINOPHILIC PNEUMONIA [None]
  - LUNG INFILTRATION [None]
  - PULMONARY TOXICITY [None]
